FAERS Safety Report 9150514 (Version 1)
Quarter: 2013Q1

REPORT INFORMATION
  Report Type: Spontaneous
  Country: US (occurrence: US)
  Receive Date: 20130308
  Receipt Date: 20130308
  Transmission Date: 20140127
  Serious: No
  Sender: FDA-Public Use
  Company Number: US-ENDO PHARMACEUTICALS INC.-OPCR20121132

PATIENT
  Age: 36 Year
  Sex: Male

DRUGS (2)
  1. OPANA ER 30MG [Suspect]
     Indication: BACK PAIN
     Route: 048
     Dates: start: 201204
  2. OPANA ER 30MG [Concomitant]
     Indication: BACK PAIN
     Route: 048
     Dates: start: 201105, end: 201204

REACTIONS (4)
  - Painful defaecation [Not Recovered/Not Resolved]
  - Excoriation [Not Recovered/Not Resolved]
  - Skin haemorrhage [Not Recovered/Not Resolved]
  - Drug effect incomplete [Not Recovered/Not Resolved]
